FAERS Safety Report 25751876 (Version 2)
Quarter: 2025Q3

REPORT INFORMATION
  Report Type: Spontaneous
  Country: US (occurrence: US)
  Receive Date: 20250902
  Receipt Date: 20250927
  Transmission Date: 20251020
  Serious: No
  Sender: NOVARTIS
  Company Number: US-002147023-NVSC2025US134008

PATIENT
  Age: 66 Year
  Sex: Female

DRUGS (1)
  1. KISQALI [Suspect]
     Active Substance: RIBOCICLIB SUCCINATE
     Indication: Breast cancer
     Dosage: 600 MG, QD 600 MG PO DAILY  FOR 21 DAYS THEN  7 DAYS OFF
     Route: 048

REACTIONS (1)
  - Product temperature excursion issue [Recovered/Resolved]

NARRATIVE: CASE EVENT DATE: 20250825
